FAERS Safety Report 18502030 (Version 2)
Quarter: 2020Q4

REPORT INFORMATION
  Report Type: Report from Study
  Country: US (occurrence: US)
  Receive Date: 20201113
  Receipt Date: 20201207
  Transmission Date: 20210114
  Serious: No
  Sender: FDA-Public Use
  Company Number: US-KYOWAKIRIN-2020BKK018529

PATIENT

DRUGS (1)
  1. CRYSVITA [Suspect]
     Active Substance: BUROSUMAB-TWZA
     Indication: HEREDITARY HYPOPHOSPHATAEMIC RICKETS
     Dosage: 90 MG, 1X/4 WEEKS
     Route: 065
     Dates: start: 201810

REACTIONS (2)
  - Tooth disorder [Unknown]
  - Arthritis [Not Recovered/Not Resolved]
